FAERS Safety Report 18577466 (Version 1)
Quarter: 2020Q4

REPORT INFORMATION
  Report Type: Spontaneous
  Country: CN (occurrence: CN)
  Receive Date: 20201203
  Receipt Date: 20201203
  Transmission Date: 20210114
  Serious: Yes (Other)
  Sender: FDA-Public Use
  Company Number: CN-009507513-2012CHN000474

PATIENT
  Age: 78 Year
  Sex: Male

DRUGS (3)
  1. TIENAM [Suspect]
     Active Substance: CILASTATIN SODIUM\IMIPENEM
     Indication: PNEUMONITIS
     Dosage: 1 GRAM, TID  (ALSO REPORTED AS Q8H)
     Route: 041
     Dates: start: 20201023, end: 20201024
  2. SODIUM CHLORIDE. [Concomitant]
     Active Substance: SODIUM CHLORIDE
     Dosage: 100 MILLILITER TID (ALSO REPORTED AS Q8H)
     Route: 041
     Dates: start: 20201023, end: 20201024
  3. MEROPENEM. [Concomitant]
     Active Substance: MEROPENEM
     Indication: PNEUMONITIS
     Dosage: 1 GRAM, Q8H
     Route: 041
     Dates: start: 20201017, end: 20201023

REACTIONS (1)
  - Epilepsy [Recovering/Resolving]

NARRATIVE: CASE EVENT DATE: 20201024
